FAERS Safety Report 9355656 (Version 1)
Quarter: 2013Q2

REPORT INFORMATION
  Report Type: Spontaneous
  Country: US (occurrence: None)
  Receive Date: 20130618
  Receipt Date: 20130618
  Transmission Date: 20140414
  Serious: Yes (Other)
  Sender: FDA-Public Use
  Company Number: None

PATIENT
  Age: 83 Year
  Sex: Female
  Weight: 68.04 kg

DRUGS (2)
  1. FENTANYL PATCH [Suspect]
     Indication: BACK PAIN
     Dosage: ONE EVERY THREE DAYS, TRANSDERMAL
     Route: 062
     Dates: start: 20130607, end: 20130615
  2. FENTANYL PATCH [Suspect]
     Indication: PAIN IN EXTREMITY
     Dosage: ONE EVERY THREE DAYS, TRANSDERMAL
     Route: 062
     Dates: start: 20130607, end: 20130615

REACTIONS (5)
  - Product adhesion issue [None]
  - Pain [None]
  - Drug effect decreased [None]
  - Disease recurrence [None]
  - Product quality issue [None]
